FAERS Safety Report 18242119 (Version 1)
Quarter: 2020Q3

REPORT INFORMATION
  Report Type: Spontaneous
  Country: US (occurrence: US)
  Receive Date: 20200908
  Receipt Date: 20200908
  Transmission Date: 20201103
  Serious: Yes (Death)
  Sender: FDA-Public Use
  Company Number: US-FARMAPROD-202008-1135

PATIENT
  Age: 86 Year
  Sex: Male
  Weight: 81.64 kg

DRUGS (32)
  1. OXERVATE [Suspect]
     Active Substance: CENEGERMIN-BKBJ
     Indication: ULCERATIVE KERATITIS
  2. TIMOLOL MALEATE. [Concomitant]
     Active Substance: TIMOLOL MALEATE
  3. TRACLEER [Concomitant]
     Active Substance: BOSENTAN
  4. OXERVATE [Suspect]
     Active Substance: CENEGERMIN-BKBJ
     Indication: HYPOAESTHESIA EYE
     Route: 047
     Dates: start: 20200213
  5. OXYGEN. [Concomitant]
     Active Substance: OXYGEN
  6. REFRESH TEARS [Concomitant]
     Active Substance: CARBOXYMETHYLCELLULOSE SODIUM
  7. ALDACTONE [Concomitant]
     Active Substance: SPIRONOLACTONE
  8. WIXELA INHUB [Concomitant]
     Active Substance: FLUTICASONE PROPIONATE\SALMETEROL XINAFOATE
     Dosage: 100?50 MCG BLST WITH DEVICE
  9. MULTIVITAMIN [Concomitant]
     Active Substance: VITAMINS
     Dosage: DAILY
  10. PROTONIX [Concomitant]
     Active Substance: PANTOPRAZOLE SODIUM
     Dosage: DELAYED RELEASE
  11. VALTREX [Concomitant]
     Active Substance: VALACYCLOVIR HYDROCHLORIDE
  12. ENTRESTO [Concomitant]
     Active Substance: SACUBITRIL\VALSARTAN
     Dosage: 24 MG?26 MG
  13. PRADAXA [Concomitant]
     Active Substance: DABIGATRAN ETEXILATE MESYLATE
  14. LASIX [Concomitant]
     Active Substance: FUROSEMIDE
  15. FERROUS SULFATE. [Concomitant]
     Active Substance: FERROUS SULFATE
     Dosage: 324(65)MG DELAYED?RELEASE TABLET
  16. TRIAMCINOLONE ACETONIDE. [Concomitant]
     Active Substance: TRIAMCINOLONE ACETONIDE
  17. SPIRIVA [Concomitant]
     Active Substance: TIOTROPIUM BROMIDE MONOHYDRATE
  18. COREG CR [Concomitant]
     Active Substance: CARVEDILOL PHOSPHATE
  19. VITAMIN C [Concomitant]
     Active Substance: ASCORBIC ACID
  20. ZOCOR [Concomitant]
     Active Substance: SIMVASTATIN
  21. KLOR?CON M10 [Concomitant]
     Active Substance: POTASSIUM CHLORIDE
  22. ADVAIR DISKUS [Concomitant]
     Active Substance: FLUTICASONE PROPIONATE\SALMETEROL XINAFOATE
  23. VITAMIN D?400 [Concomitant]
  24. MOXIFLOXACIN HCL [Concomitant]
     Active Substance: MOXIFLOXACIN
  25. ACYCLOVIR. [Concomitant]
     Active Substance: ACYCLOVIR
  26. VENTAVIS [Concomitant]
     Active Substance: ILOPROST
  27. SINGULAIR [Concomitant]
     Active Substance: MONTELUKAST SODIUM
  28. METOPROLOL SUCCINATE. [Concomitant]
     Active Substance: METOPROLOL SUCCINATE
  29. ALLOPURINOL. [Concomitant]
     Active Substance: ALLOPURINOL
  30. NIASPAN [Concomitant]
     Active Substance: NIACIN
  31. ZESTRIL [Concomitant]
     Active Substance: LISINOPRIL
  32. ASPIRIN. [Concomitant]
     Active Substance: ASPIRIN

REACTIONS (1)
  - Death [Fatal]

NARRATIVE: CASE EVENT DATE: 20200721
